FAERS Safety Report 21360059 (Version 2)
Quarter: 2022Q4

REPORT INFORMATION
  Report Type: Spontaneous
  Country: US (occurrence: US)
  Receive Date: 20220921
  Receipt Date: 20221006
  Transmission Date: 20230113
  Serious: Yes (Hospitalization)
  Sender: FDA-Public Use
  Company Number: US-TEVA-2022-US-2074142

PATIENT
  Age: 37 Year
  Sex: Female

DRUGS (7)
  1. BUPROPION [Suspect]
     Active Substance: BUPROPION
     Indication: Depression
     Dosage: 300 MILLIGRAM DAILY; SR
     Route: 065
  2. FLUOXETINE [Suspect]
     Active Substance: FLUOXETINE HYDROCHLORIDE
     Indication: Depression
     Dosage: 40 MILLIGRAM DAILY;
     Route: 065
  3. METOCLOPRAMIDE [Suspect]
     Active Substance: METOCLOPRAMIDE
     Indication: Gastrooesophageal reflux disease
     Dosage: 20 MILLIGRAM DAILY; AS REQUIRED
     Route: 065
  4. CITALOPRAM [Suspect]
     Active Substance: CITALOPRAM HYDROBROMIDE
     Indication: Depression
     Dosage: 40 MILLIGRAM DAILY;
     Route: 065
  5. HERBALS\UNCARIA TOMENTOSA WHOLE [Suspect]
     Active Substance: HERBALS\UNCARIA TOMENTOSA WHOLE
     Indication: Weight loss diet
     Route: 065
  6. DEXBROMPHENIRAMINE [Concomitant]
     Active Substance: DEXBROMPHENIRAMINE
     Indication: Antiallergic therapy
     Route: 065
  7. PHENYLEPHRINE [Concomitant]
     Active Substance: PHENYLEPHRINE HYDROCHLORIDE
     Indication: Nasal decongestion therapy
     Route: 065

REACTIONS (1)
  - Serotonin syndrome [Recovering/Resolving]
